FAERS Safety Report 25129449 (Version 1)
Quarter: 2025Q1

REPORT INFORMATION
  Report Type: Report from Study
  Country: US (occurrence: US)
  Receive Date: 20250327
  Receipt Date: 20250327
  Transmission Date: 20250409
  Serious: Yes (Hospitalization, Other)
  Sender: ABBVIE
  Company Number: US-ABBVIE-6191802

PATIENT
  Age: 39 Year
  Sex: Male

DRUGS (1)
  1. SKYRIZI [Suspect]
     Active Substance: RISANKIZUMAB-RZAA
     Indication: Psoriasis
     Route: 058
     Dates: start: 20220627

REACTIONS (6)
  - Respiratory disorder [Unknown]
  - Arthralgia [Unknown]
  - Dizziness [Unknown]
  - Loss of consciousness [Unknown]
  - Pain in extremity [Unknown]
  - Pneumothorax [Unknown]

NARRATIVE: CASE EVENT DATE: 20250101
